FAERS Safety Report 5296005-1 (Version None)
Quarter: 2007Q2

REPORT INFORMATION
  Report Type: 
  Country: None (occurrence: None)
  Receive Date: 20070406
  Receipt Date: 20070322
  Transmission Date: 20071010
  Serious: Yes (Hospitalization)
  Sender: FDA-Public Use
  Company Number: 238697

PATIENT
  Age: 59 Year
  Sex: Male

DRUGS (1)
  1. RAPTIVA [Suspect]
     Indication: ERYTHRODERMIC PSORIASIS
     Dosage: 1.14 MG/KG, 1/WEEK, SUBCUTANEOUS
     Route: 058
     Dates: start: 20060401

REACTIONS (2)
  - CORNEAL DISORDER [None]
  - CORNEAL TRANSPLANT [None]
